FAERS Safety Report 5712638-X (Version None)
Quarter: 2008Q2

REPORT INFORMATION
  Report Type: 
  Country: None (occurrence: None)
  Receive Date: 20080422
  Receipt Date: 20080411
  Transmission Date: 20081010
  Serious: Yes (Other)
  Sender: FDA-Public Use
  Company Number: US-AVENTIS-200718343US

PATIENT
  Sex: Female
  Weight: 144 kg

DRUGS (15)
  1. KETEK [Suspect]
     Dosage: DOSE: UNK
  2. ALPRAZOLAM [Concomitant]
  3. ALPRAZOLAM [Concomitant]
     Route: 048
  4. TRAZODONE HCL [Concomitant]
  5. DOXEPIN HCL [Concomitant]
  6. KEFLEX [Concomitant]
     Route: 048
  7. KEFLEX [Concomitant]
  8. PNEUMOTUSSIN [Concomitant]
  9. CELEXA [Concomitant]
  10. OMNICEF                            /01130201/ [Concomitant]
  11. CATAFLAM                           /00372302/ [Concomitant]
  12. NEURONTIN [Concomitant]
  13. ACIPHEX [Concomitant]
  14. CLONIDINE HCL [Concomitant]
  15. LEXAPRO [Concomitant]

REACTIONS (7)
  - ABDOMINAL DISTENSION [None]
  - ABDOMINAL PAIN [None]
  - AGORAPHOBIA [None]
  - ANXIETY DISORDER [None]
  - GASTROOESOPHAGEAL REFLUX DISEASE [None]
  - HEPATIC CIRRHOSIS [None]
  - INJURY [None]
